FAERS Safety Report 5228778-8 (Version None)
Quarter: 2007Q1

REPORT INFORMATION
  Report Type: 
  Country: None (occurrence: None)
  Receive Date: 20070131
  Receipt Date: 20070116
  Transmission Date: 20070707
  Serious: Yes (Hospitalization)
  Sender: FDA-Public Use
  Company Number: T200700068

PATIENT
  Sex: Female

DRUGS (4)
  1. MIXED AMPHETAMINE SALTS (DEXTROAMPHETAMINE [Suspect]
     Indication: ATTENTION DEFICIT/HYPERACTIVITY DISORDER
     Dosage: 20 MG, QD, ORAL
     Route: 048
     Dates: start: 20051216
  2. DEXTROAMPHETAMINE SULFATE EXTENDED RELEASE (DEXTROAMPHETAMINE SULFATE) [Concomitant]
  3. CLONAZEPAM [Concomitant]
  4. CHLORDIAZEPOXIDE [Concomitant]

REACTIONS (5)
  - ANXIETY [None]
  - BODY TEMPERATURE INCREASED [None]
  - DELUSION [None]
  - DISORIENTATION [None]
  - MALAISE [None]
